FAERS Safety Report 7618070-6 (Version None)
Quarter: 2011Q3

REPORT INFORMATION
  Report Type: 
  Country: None (occurrence: None)
  Receive Date: 20110718
  Receipt Date: 20110714
  Transmission Date: 20111222
  Serious: Yes (Death, Other)
  Sender: FDA-Public Use
  Company Number: GB-PFIZER INC-2011160556

PATIENT
  Sex: Male

DRUGS (2)
  1. LYRICA [Suspect]
     Indication: NEURALGIA
     Dosage: UNK
  2. MORPHINE [Concomitant]
     Dosage: UNK

REACTIONS (5)
  - DISEASE PROGRESSION [None]
  - METASTASES TO BONE [None]
  - VISION BLURRED [None]
  - LUNG NEOPLASM MALIGNANT [None]
  - VISUAL IMPAIRMENT [None]
